FAERS Safety Report 23696362 (Version 1)
Quarter: 2024Q2

REPORT INFORMATION
  Report Type: Spontaneous
  Country: US (occurrence: US)
  Receive Date: 20240402
  Receipt Date: 20240402
  Transmission Date: 20240716
  Serious: Yes (Other)
  Sender: FDA-Public Use
  Company Number: US-Accord-415607

PATIENT
  Age: 32 Year
  Sex: Female

DRUGS (4)
  1. BUSPIRONE [Suspect]
     Active Substance: BUSPIRONE HYDROCHLORIDE
     Indication: Product used for unknown indication
  2. LUMATEPERONE [Suspect]
     Active Substance: LUMATEPERONE
     Indication: Schizophrenia
     Dates: end: 2024
  3. ARMODAFINIL [Suspect]
     Active Substance: ARMODAFINIL
     Indication: Product used for unknown indication
     Dosage: STRENGTH: 150 MG
  4. LUMATEPERONE [Suspect]
     Active Substance: LUMATEPERONE
     Indication: Schizophrenia
     Dates: start: 2024, end: 202402

REACTIONS (6)
  - Neuroleptic malignant syndrome [Recovered/Resolved]
  - Feeling hot [Recovered/Resolved]
  - Vertigo [Recovered/Resolved]
  - Heart rate increased [Recovered/Resolved]
  - Dysphagia [Recovered/Resolved]
  - Tremor [Recovered/Resolved]

NARRATIVE: CASE EVENT DATE: 20240201
